FAERS Safety Report 6046929-2 (Version None)
Quarter: 2009Q1

REPORT INFORMATION
  Report Type: 
  Country: None (occurrence: None)
  Receive Date: 20090122
  Receipt Date: 20090113
  Transmission Date: 20090719
  Serious: Yes (Life-Threatening, Hospitalization, Other)
  Sender: FDA-Public Use
  Company Number: US-PFIZER INC-2008099096

PATIENT
  Sex: Male
  Weight: 84.2 kg

DRUGS (2)
  1. ARGATROBAN [Suspect]
     Indication: LIVER TRANSPLANT
     Dosage: 350 MG, UNK
     Dates: start: 20060612
  2. SOLU-MEDROL [Concomitant]

REACTIONS (5)
  - ANAEMIA [None]
  - COAGULOPATHY [None]
  - HEPATITIS C [None]
  - PERIHEPATIC ABSCESS [None]
  - TRANSPLANT REJECTION [None]
